FAERS Safety Report 6772150-6 (Version None)
Quarter: 2010Q2

REPORT INFORMATION
  Report Type: 
  Country: None (occurrence: None)
  Receive Date: 20100616
  Receipt Date: 20100421
  Transmission Date: 20101027
  Serious: No
  Sender: FDA-Public Use
  Company Number: US-ASTRAZENECA-2010SE18024

PATIENT
  Sex: Female

DRUGS (1)
  1. PULMICORT [Suspect]
     Indication: ASTHMA
     Dosage: 100 2 PUFFS IN MORNING AND 2 PUFFS AT NIGHT
     Route: 055

REACTIONS (5)
  - DIZZINESS [None]
  - FEELING ABNORMAL [None]
  - MALAISE [None]
  - NASOPHARYNGITIS [None]
  - THROAT IRRITATION [None]
